FAERS Safety Report 10181383 (Version 1)
Quarter: 2014Q2

REPORT INFORMATION
  Report Type: Report from Study
  Country: US (occurrence: US)
  Receive Date: 20140519
  Receipt Date: 20140519
  Transmission Date: 20141212
  Serious: Yes (Hospitalization)
  Sender: FDA-Public Use
  Company Number: US-BRISTOL-MYERS SQUIBB COMPANY-20612859

PATIENT
  Sex: Male

DRUGS (18)
  1. ARIPIPRAZOLE [Suspect]
     Dates: start: 20131105, end: 20140325
  2. ALLOPURINOL [Concomitant]
  3. AMLODIPINE [Concomitant]
  4. ATORVASTATIN [Concomitant]
  5. CHOLECALCIFEROL [Concomitant]
  6. COLCHICINE [Concomitant]
  7. CYCLOBENZAPRINE HCL [Concomitant]
  8. FENOFIBRATE [Concomitant]
  9. FISH OIL [Concomitant]
  10. FLUTICASONE [Concomitant]
  11. LISINOPRIL [Concomitant]
  12. METFORMIN HCL [Concomitant]
  13. METOPROLOL TARTRATE [Concomitant]
  14. NAPROXEN [Concomitant]
  15. OMEPRAZOLE [Concomitant]
  16. PRAZOSIN [Concomitant]
  17. TRAMADOL [Concomitant]
  18. TRAZODONE HCL [Concomitant]

REACTIONS (1)
  - Pneumonia [Recovered/Resolved]
